FAERS Safety Report 9832103 (Version 2)
Quarter: 2014Q1

REPORT INFORMATION
  Report Type: Spontaneous
  Country: BR (occurrence: BR)
  Receive Date: 20140121
  Receipt Date: 20140205
  Transmission Date: 20141002
  Serious: Yes (Hospitalization)
  Sender: FDA-Public Use
  Company Number: BR-NOVOPROD-398175

PATIENT
  Sex: Male
  Weight: 60 kg

DRUGS (3)
  1. NOVORAPID FLEXPEN [Suspect]
     Indication: TYPE 1 DIABETES MELLITUS
     Dosage: 14 TO 15 IU, 6 TIMES DAILY
     Route: 058
     Dates: start: 201305
  2. NOVORAPID [Suspect]
     Indication: TYPE 1 DIABETES MELLITUS
     Dosage: 14 TO 15 IU, 6 TIMES DAILY
     Route: 058
     Dates: start: 201305
  3. LANTUS [Concomitant]
     Indication: TYPE 1 DIABETES MELLITUS
     Dosage: ONCE A DAY (UNKNOWN DOSE)

REACTIONS (2)
  - Viral infection [Recovered/Resolved]
  - Application site haematoma [Not Recovered/Not Resolved]
